FAERS Safety Report 4870659-3 (Version None)
Quarter: 2006Q1

REPORT INFORMATION
  Report Type: 
  Country: None (occurrence: None)
  Receive Date: 20060103
  Receipt Date: 20051220
  Transmission Date: 20060701
  Serious: Yes (Hospitalization, Other)
  Sender: FDA-Public Use
  Company Number: CA-JNJFOC-20051204988

PATIENT
  Sex: Male

DRUGS (25)
  1. DURAGESIC-100 [Suspect]
     Route: 062
  2. DURAGESIC-100 [Suspect]
     Route: 062
  3. ADALAT [Concomitant]
     Dosage: EACH MORNING
     Route: 048
  4. HALOPERIDOL [Concomitant]
     Indication: NAUSEA
     Dosage: 1/2 OF A 1 MG TABLET
     Route: 048
  5. PANTOPRAZOLE SODIUM [Concomitant]
     Indication: GASTROINTESTINAL DISORDER
     Route: 048
  6. DOMPERIDONE [Concomitant]
     Dosage: ONE TABLET 20 MINUTES BEFORE MEALS AND BEFORE BEDTIME
     Route: 048
  7. ALLOPURINOL [Concomitant]
     Indication: GOUT
     Route: 048
  8. AMOXICILLIN [Concomitant]
     Indication: PROPHYLAXIS
     Dosage: 2000 MG ONE HOUR PRIOR TO DENTAL WORK (DUE TO HISTORY OF AORTIC ANEURYSM SURGERY)
     Route: 048
  9. ARICEPT [Concomitant]
     Indication: MEMORY IMPAIRMENT
     Route: 048
  10. OXYCOCET [Concomitant]
     Route: 048
  11. OXYCOCET [Concomitant]
     Indication: PAIN
     Dosage: 5 MG OXYCODONE HYDROCHLORIDE/325 MG ACETAMINOPHEN, 4 IN 1 DAY AS NEEDED
     Route: 048
  12. OXYCONTIN [Concomitant]
     Route: 048
  13. AMITRIPTYLINE [Concomitant]
     Indication: SLEEP DISORDER THERAPY
     Dosage: 10 MG TABLETS (10 MG TO 30 MG AT BEDTIME, WHEN REQUIRED FOR SLEEP)
     Route: 048
  14. BISOCODYL [Concomitant]
     Route: 048
  15. BISOCODYL [Concomitant]
     Route: 048
  16. BISOCODYL [Concomitant]
     Route: 048
  17. BISOCODYL [Concomitant]
     Route: 048
  18. BISOCODYL [Concomitant]
     Indication: CONSTIPATION
     Route: 048
  19. SOFLAX [Concomitant]
     Indication: CONSTIPATION
     Dosage: 100 MG OR 200 MG AT NIGHT
  20. LACTULOSE [Concomitant]
     Dosage: ONE TABLESPOON ONCE OR TWICE DAILY
     Route: 048
  21. METAMUCIL [Concomitant]
     Dosage: ONE TABLESPOON, 2 IN 1 DAY
     Route: 048
  22. ASPIRIN [Concomitant]
     Route: 048
  23. ZINC GLUCONATE [Concomitant]
  24. CALCIUM GLUCONATE [Concomitant]
  25. EXTRA STRENGTH TYLENOL [Concomitant]

REACTIONS (9)
  - AMYLOIDOSIS [None]
  - CHRONIC OBSTRUCTIVE PULMONARY DISEASE [None]
  - CONSTIPATION [None]
  - DIZZINESS [None]
  - HYPERHIDROSIS [None]
  - NAUSEA [None]
  - PNEUMONIA [None]
  - PYREXIA [None]
  - RENAL FAILURE [None]
